FAERS Safety Report 9088729 (Version 1)
Quarter: 2013Q1

REPORT INFORMATION
  Report Type: Report from Study
  Country: US (occurrence: US)
  Receive Date: 20130201
  Receipt Date: 20130201
  Transmission Date: 20140127
  Serious: No
  Sender: FDA-Public Use
  Company Number: US-ABBOTT-12P-163-1024232-00

PATIENT
  Age: 51 Year
  Sex: Female

DRUGS (5)
  1. HUMIRA [Suspect]
     Indication: PSORIASIS
     Route: 058
     Dates: start: 20121010
  2. ACCUPRIL [Concomitant]
     Indication: HYPERTENSION
     Dosage: 40 MG DAILY
  3. SIMVASTATIN [Concomitant]
     Indication: BLOOD CHOLESTEROL INCREASED
     Dosage: 40 MG DAILY
  4. BABY ASPIRIN [Concomitant]
     Indication: ANTICOAGULANT THERAPY
  5. OVER THE COUNTER POTASSIUM [Concomitant]
     Indication: PRODUCT USED FOR UNKNOWN INDICATION

REACTIONS (1)
  - Feeling cold [Not Recovered/Not Resolved]
